FAERS Safety Report 6697727-8 (Version None)
Quarter: 2010Q2

REPORT INFORMATION
  Report Type: 
  Country: None (occurrence: None)
  Receive Date: 20100426
  Receipt Date: 20100415
  Transmission Date: 20101027
  Serious: Yes (Life-Threatening, Hospitalization)
  Sender: FDA-Public Use
  Company Number: ES-GENENTECH-287708

PATIENT
  Sex: Female
  Weight: 68 kg

DRUGS (62)
  1. BLINDED BEVACIZUMAB [Suspect]
     Indication: DIFFUSE LARGE B-CELL LYMPHOMA
     Dosage: 1 UNK, Q14D
     Route: 042
     Dates: start: 20090709, end: 20090730
  2. CYCLOPHOSPHAMIDE [Suspect]
     Indication: DIFFUSE LARGE B-CELL LYMPHOMA
     Dosage: 1 UNK, Q14D
     Route: 042
     Dates: start: 20090709, end: 20090730
  3. DOXORUBICIN HCL [Suspect]
     Indication: DIFFUSE LARGE B-CELL LYMPHOMA
     Dosage: 1 UNK, Q14D
     Route: 042
     Dates: start: 20090709, end: 20090730
  4. BLINDED PLACEBO [Suspect]
     Indication: DIFFUSE LARGE B-CELL LYMPHOMA
     Dosage: 1 UNK, Q14D
     Route: 042
     Dates: start: 20090709, end: 20090730
  5. PREDNISONE TAB [Suspect]
     Indication: DIFFUSE LARGE B-CELL LYMPHOMA
     Dosage: 1 UNK, Q14D
     Route: 042
     Dates: start: 20090709, end: 20090730
  6. BLINDED RITUXIMAB [Suspect]
     Indication: DIFFUSE LARGE B-CELL LYMPHOMA
     Dosage: 1 UNK, Q14D
     Route: 042
     Dates: start: 20090709, end: 20090730
  7. VINCRISTINE [Suspect]
     Indication: DIFFUSE LARGE B-CELL LYMPHOMA
     Dosage: 1 UNK, Q14D
     Route: 042
     Dates: start: 20090709, end: 20090730
  8. BLINDED BEVACIZUMAB [Suspect]
     Dosage: UNK
     Route: 042
  9. CYCLOPHOSPHAMIDE [Suspect]
     Dosage: UNK
     Route: 042
  10. DOXORUBICIN HCL [Suspect]
     Dosage: UNK
     Route: 042
  11. BLINDED PLACEBO [Suspect]
     Dosage: UNK
     Route: 042
  12. PREDNISONE TAB [Suspect]
     Dosage: UNK
     Route: 042
  13. BLINDED RITUXIMAB [Suspect]
     Dosage: UNK
     Route: 042
  14. VINCRISTINE [Suspect]
     Dosage: UNK
     Route: 042
  15. BLINDED BEVACIZUMAB [Suspect]
     Dosage: UNK
     Route: 042
  16. CYCLOPHOSPHAMIDE [Suspect]
     Dosage: UNK
     Route: 042
  17. DOXORUBICIN HCL [Suspect]
     Dosage: UNK
     Route: 042
  18. BLINDED PLACEBO [Suspect]
     Dosage: UNK
     Route: 042
  19. PREDNISONE TAB [Suspect]
     Dosage: UNK
     Route: 042
  20. BLINDED RITUXIMAB [Suspect]
     Dosage: UNK
     Route: 042
  21. VINCRISTINE [Suspect]
     Dosage: UNK
     Route: 042
  22. BLINDED BEVACIZUMAB [Suspect]
     Dosage: UNK
     Route: 042
     Dates: start: 20091127
  23. CYCLOPHOSPHAMIDE [Suspect]
     Dosage: UNK
     Route: 042
     Dates: start: 20091127
  24. DOXORUBICIN HCL [Suspect]
     Dosage: UNK
     Route: 042
     Dates: start: 20091127
  25. BLINDED PLACEBO [Suspect]
     Dosage: UNK
     Route: 042
     Dates: start: 20091127
  26. PREDNISONE TAB [Suspect]
     Dosage: UNK
     Route: 042
     Dates: start: 20091127
  27. BLINDED RITUXIMAB [Suspect]
     Dosage: UNK
     Route: 042
     Dates: start: 20091127
  28. VINCRISTINE [Suspect]
     Dosage: UNK
     Route: 042
     Dates: start: 20091127
  29. BLINDED BEVACIZUMAB [Suspect]
     Dosage: UNK
     Route: 042
     Dates: start: 20091204, end: 20100305
  30. CYCLOPHOSPHAMIDE [Suspect]
     Dosage: UNK
     Route: 042
     Dates: start: 20091204, end: 20100305
  31. DOXORUBICIN HCL [Suspect]
     Dosage: UNK
     Route: 042
     Dates: start: 20091204, end: 20100305
  32. BLINDED PLACEBO [Suspect]
     Dosage: UNK
     Route: 042
     Dates: start: 20091204, end: 20100305
  33. PREDNISONE TAB [Suspect]
     Dosage: UNK
     Route: 042
     Dates: start: 20091204, end: 20100305
  34. BLINDED RITUXIMAB [Suspect]
     Dosage: UNK
     Route: 042
     Dates: start: 20091204, end: 20100305
  35. VINCRISTINE [Suspect]
     Dosage: UNK
     Route: 042
     Dates: start: 20091204, end: 20100305
  36. BLINDED BEVACIZUMAB [Suspect]
     Dosage: UNK
     Route: 042
     Dates: start: 20100312
  37. CYCLOPHOSPHAMIDE [Suspect]
     Dosage: UNK
     Route: 042
     Dates: start: 20100312
  38. DOXORUBICIN HCL [Suspect]
     Dosage: UNK
     Route: 042
     Dates: start: 20100312
  39. BLINDED PLACEBO [Suspect]
     Dosage: UNK
     Route: 042
     Dates: start: 20100312
  40. PREDNISONE TAB [Suspect]
     Dosage: UNK
     Route: 042
     Dates: start: 20100312
  41. BLINDED RITUXIMAB [Suspect]
     Dosage: UNK
     Route: 042
     Dates: start: 20100312
  42. VINCRISTINE [Suspect]
     Dosage: UNK
     Route: 042
     Dates: start: 20100312
  43. RITUXAN [Suspect]
     Indication: DIFFUSE LARGE B-CELL LYMPHOMA
     Dosage: 600 MG, Q14D
     Route: 042
     Dates: start: 20090710, end: 20090730
  44. RITUXAN [Suspect]
     Dosage: 600 MG, Q14D
     Route: 042
  45. RITUXAN [Suspect]
     Dosage: 600 MG, Q14D
     Route: 042
  46. CYCLOPHOSPHAMIDE [Suspect]
     Indication: DIFFUSE LARGE B-CELL LYMPHOMA
     Dosage: 1200 MG, Q14D
     Route: 042
     Dates: start: 20090710, end: 20090730
  47. CYCLOPHOSPHAMIDE [Suspect]
     Route: 042
  48. CYCLOPHOSPHAMIDE [Suspect]
     Dosage: 1200 MG, Q14D
     Route: 042
  49. DOXORUBICIN HCL [Suspect]
     Indication: DIFFUSE LARGE B-CELL LYMPHOMA
     Dosage: 80 MG, Q14D
     Route: 042
     Dates: start: 20090710, end: 20090730
  50. DOXORUBICIN HCL [Suspect]
     Dosage: 80 MG, Q14D
     Route: 042
  51. DOXORUBICIN HCL [Suspect]
     Dosage: 80 MG, Q14D
     Route: 042
  52. PREDNISONE TAB [Suspect]
     Indication: DIFFUSE LARGE B-CELL LYMPHOMA
     Dosage: 500 MG, Q14D
     Route: 048
     Dates: start: 20090710, end: 20090730
  53. PREDNISONE TAB [Suspect]
     Dosage: 500 MG, Q14D
     Route: 048
  54. PREDNISONE TAB [Suspect]
     Dosage: 500 MG, Q14D
     Route: 048
  55. VINCRISTINE [Suspect]
     Indication: DIFFUSE LARGE B-CELL LYMPHOMA
     Dosage: 2 MG, Q14D
     Route: 042
     Dates: start: 20090710, end: 20090730
  56. VINCRISTINE [Suspect]
     Dosage: 2 MG, Q14D
     Route: 042
  57. VINCRISTINE [Suspect]
     Dosage: 2 MG, Q14D
     Route: 042
  58. PANTOPRAZOLE [Concomitant]
     Indication: DRUG USE FOR UNKNOWN INDICATION
  59. ASPIRIN [Concomitant]
     Indication: DRUG USE FOR UNKNOWN INDICATION
  60. ALLOPURINOL [Concomitant]
     Indication: DRUG USE FOR UNKNOWN INDICATION
  61. LORAZEPAM [Concomitant]
     Indication: DRUG USE FOR UNKNOWN INDICATION
  62. SULFAMETHOXAZOLE AND TRIMETHOPRIM [Concomitant]
     Indication: DRUG USE FOR UNKNOWN INDICATION

REACTIONS (3)
  - FEBRILE NEUTROPENIA [None]
  - LOWER LIMB FRACTURE [None]
  - NEUTROPENIA [None]
